FAERS Safety Report 22321781 (Version 1)
Quarter: 2023Q2

REPORT INFORMATION
  Report Type: Spontaneous
  Country: US (occurrence: US)
  Receive Date: 20230516
  Receipt Date: 20230516
  Transmission Date: 20230722
  Serious: Yes (Other)
  Sender: FDA-Public Use
  Company Number: US-JNJFOC-20230519713

PATIENT
  Sex: Female

DRUGS (1)
  1. XARELTO [Suspect]
     Active Substance: RIVAROXABAN
     Indication: Product used for unknown indication
     Route: 048

REACTIONS (7)
  - Cardiac pacemaker insertion [Unknown]
  - Dental prosthesis placement [Unknown]
  - Gingival bleeding [Not Recovered/Not Resolved]
  - Epistaxis [Unknown]
  - Noninfective gingivitis [Unknown]
  - Contusion [Unknown]
  - Drug hypersensitivity [Unknown]
